FAERS Safety Report 8866456 (Version 1)
Quarter: 2012Q4

REPORT INFORMATION
  Report Type: 
  Country: AT (occurrence: AT)
  Receive Date: 20121025
  Receipt Date: 20121025
  Transmission Date: 20130627
  Serious: Yes (Hospitalization)
  Sender: FDA-Public Use
  Company Number: AT-VERTEX PHARMACEUTICAL INC.-2012-023508

PATIENT
  Age: 66 Year
  Sex: Male
  Weight: 78 kg

DRUGS (7)
  1. INCIVO [Suspect]
     Indication: HEPATITIS C
     Dosage: Dosage Form: Tablet
     Route: 065
     Dates: start: 20120301, end: 20120522
  2. PEGASYS [Concomitant]
     Indication: HEPATITIS C
     Dosage: Dosage Form: Unspecified
     Route: 065
     Dates: start: 20120301
  3. RIBAVIRIN [Concomitant]
     Indication: HEPATITIS C
     Dosage: Dosage Form: Unspecified
     Route: 048
     Dates: start: 20120301
  4. MEXALEN [Concomitant]
     Indication: UNEVALUABLE EVENT
     Dosage: Dosage Form: Unspecified
     Route: 048
     Dates: start: 20120301
  5. CO-RENITEC [Concomitant]
     Indication: HYPERTONIA
     Dosage: Dosage Form: Unspecified, Months-years
     Route: 065
  6. AMLODIPINE [Concomitant]
     Indication: HYPERTONIA
     Dosage: Dosage Form: Unspecified, months to years
     Route: 048
  7. FOSAMAX [Concomitant]
     Indication: OSTEOPOROSIS
     Dosage: Dosage Form: Unspecified, months to years
     Route: 048

REACTIONS (1)
  - Drug reaction with eosinophilia and systemic symptoms [Not Recovered/Not Resolved]
